FAERS Safety Report 7244996-1 (Version None)
Quarter: 2011Q1

REPORT INFORMATION
  Report Type: 
  Country: None (occurrence: None)
  Receive Date: 20110118
  Receipt Date: 20110110
  Transmission Date: 20110831
  Serious: Yes (Hospitalization)
  Sender: FDA-Public Use
  Company Number: DSA_44468_2010

PATIENT
  Sex: Male

DRUGS (9)
  1. DILTIAZEM HCL [Suspect]
     Indication: PRODUCT USED FOR UNKNOWN INDICATION
     Dosage: (DF)
     Dates: end: 20101103
  2. ASPIRIN [Concomitant]
  3. CLOPIDOGREL BISULFATE [Concomitant]
  4. PLACEBO [Suspect]
     Indication: THROMBOSIS PROPHYLAXIS
     Dosage: (DF ORAL)
     Route: 048
     Dates: start: 20100506, end: 20101102
  5. NITROGLYCERIN [Concomitant]
  6. APIXABAN [Suspect]
     Indication: THROMBOSIS PROPHYLAXIS
     Dosage: (10 MG QD ORAL)
     Route: 048
     Dates: start: 20100506, end: 20101102
  7. PERINDOPRIL [Concomitant]
  8. ATORVASTATIN [Concomitant]
  9. METOPROLOL SUCCINATE [Suspect]
     Indication: PRODUCT USED FOR UNKNOWN INDICATION
     Dosage: (DF)
     Dates: start: 20100430, end: 20101102

REACTIONS (3)
  - TACHYARRHYTHMIA [None]
  - ALTERED STATE OF CONSCIOUSNESS [None]
  - HYPOTENSION [None]
